FAERS Safety Report 5251710-8 (Version None)
Quarter: 2007Q1

REPORT INFORMATION
  Report Type: 
  Country: None (occurrence: None)
  Receive Date: 20070228
  Receipt Date: 20061018
  Transmission Date: 20070707
  Serious: No
  Sender: FDA-Public Use
  Company Number: US-GLAXOSMITHKLINE-A0624054A

PATIENT
  Age: 49 Year
  Sex: Female

DRUGS (7)
  1. LAMICTAL [Suspect]
     Indication: BIPOLAR DISORDER
     Route: 048
     Dates: start: 20061001
  2. TOPAMAX [Concomitant]
  3. KLONOPIN [Concomitant]
  4. CYMBALTA [Concomitant]
  5. DILAUDID [Concomitant]
  6. BUPRENEX [Concomitant]
  7. ZOMIG [Concomitant]

REACTIONS (2)
  - HOT FLUSH [None]
  - HYPERHIDROSIS [None]
